FAERS Safety Report 6269733-9 (Version None)
Quarter: 2009Q3

REPORT INFORMATION
  Report Type: 
  Country: None (occurrence: None)
  Receive Date: 20090716
  Receipt Date: 20090707
  Transmission Date: 20100115
  Serious: Yes (Hospitalization)
  Sender: FDA-Public Use
  Company Number: FR-JNJFOC-20090702838

PATIENT
  Age: 58 Year
  Sex: Female
  Weight: 60 kg

DRUGS (12)
  1. REMICADE [Suspect]
     Route: 042
  2. REMICADE [Suspect]
     Route: 042
  3. REMICADE [Suspect]
     Indication: RHEUMATOID ARTHRITIS
     Route: 042
  4. NEXIUM [Suspect]
     Indication: DRUG USE FOR UNKNOWN INDICATION
     Route: 048
  5. ACTONEL [Suspect]
     Indication: NEURALGIA
     Route: 048
  6. METHOTREXATE [Suspect]
     Indication: RHEUMATOID ARTHRITIS
     Route: 042
  7. LYRICA [Suspect]
     Indication: NEURALGIA
     Route: 048
  8. FORTEO [Suspect]
     Indication: OSTEOPOROSIS
     Route: 058
  9. DIFFU-K [Concomitant]
  10. BI-PROFENID [Concomitant]
  11. PARACETAMOL [Concomitant]
  12. PREDNISONE TAB [Concomitant]

REACTIONS (5)
  - BACTERIAL INFECTION [None]
  - GAIT DISTURBANCE [None]
  - PARAESTHESIA [None]
  - PERIPHERAL SENSORIMOTOR NEUROPATHY [None]
  - SJOGREN'S SYNDROME [None]
